FAERS Safety Report 22173496 (Version 3)
Quarter: 2023Q2

REPORT INFORMATION
  Report Type: Spontaneous
  Country: US (occurrence: US)
  Receive Date: 20230404
  Receipt Date: 20230428
  Transmission Date: 20230722
  Serious: Yes (Death)
  Sender: FDA-Public Use
  Company Number: US-PFIZER INC-202300046406

PATIENT
  Age: 74 Year
  Sex: Male

DRUGS (1)
  1. VYNDAMAX [Suspect]
     Active Substance: TAFAMIDIS
     Indication: Cardiac failure
     Dosage: 61 MG, 2X/DAY
     Route: 048
     Dates: start: 2022, end: 20230303

REACTIONS (2)
  - Cardiac failure [Fatal]
  - Off label use [Unknown]

NARRATIVE: CASE EVENT DATE: 20220101
